FAERS Safety Report 5374971-3 (Version None)
Quarter: 2007Q2

REPORT INFORMATION
  Report Type: 
  Country: None (occurrence: None)
  Receive Date: 20070629
  Receipt Date: 20070621
  Transmission Date: 20071010
  Serious: Yes (Other)
  Sender: FDA-Public Use
  Company Number: US-SANOFI-SYNTHELABO-A03200704105

PATIENT
  Age: 55 Year
  Sex: Female

DRUGS (2)
  1. AMBIEN [Suspect]
     Indication: INSOMNIA
     Route: 048
     Dates: start: 20070618, end: 20070619
  2. TOPAMAX [Concomitant]
     Route: 048

REACTIONS (7)
  - AMNESIA [None]
  - CONCUSSION [None]
  - DIZZINESS [None]
  - FALL [None]
  - HEAD INJURY [None]
  - NAUSEA [None]
  - VOMITING [None]
